FAERS Safety Report 7958279-5 (Version None)
Quarter: 2011Q4

REPORT INFORMATION
  Report Type: 
  Country: None (occurrence: None)
  Receive Date: 20111205
  Receipt Date: 20020620
  Transmission Date: 20120403
  Serious: Yes (Death, Other)
  Sender: FDA-Public Use
  Company Number: PHHY2002CO002871

PATIENT
  Sex: Male

DRUGS (2)
  1. EXELON [Suspect]
     Indication: DEMENTIA ALZHEIMER'S TYPE
     Dosage: UNK
     Route: 048
  2. COMTAN [Concomitant]
     Indication: PARKINSON'S DISEASE

REACTIONS (1)
  - DEATH [None]
